FAERS Safety Report 16923354 (Version 2)
Quarter: 2019Q4

REPORT INFORMATION
  Report Type: Spontaneous
  Country: IT (occurrence: IT)
  Receive Date: 20191016
  Receipt Date: 20191018
  Transmission Date: 20200122
  Serious: Yes (Other)
  Sender: FDA-Public Use
  Company Number: IT-TEVA-2019-IT-1121356

PATIENT
  Age: 72 Year
  Sex: Male

DRUGS (1)
  1. EPIRUBICINA TEVA 2 MG/ML SOLUTION INIETTABILE OR FOR INFUSION [Suspect]
     Active Substance: EPIRUBICIN HYDROCHLORIDE
     Indication: BLADDER NEOPLASM
     Route: 043
     Dates: start: 20190806, end: 20190806

REACTIONS (3)
  - Haematuria [Recovering/Resolving]
  - Bladder irritation [Recovering/Resolving]
  - Pain [Recovering/Resolving]

NARRATIVE: CASE EVENT DATE: 20190806
